FAERS Safety Report 7507983-1 (Version None)
Quarter: 2011Q2

REPORT INFORMATION
  Report Type: 
  Country: None (occurrence: None)
  Receive Date: 20110527
  Receipt Date: 20110516
  Transmission Date: 20111010
  Serious: Yes (Other)
  Sender: FDA-Public Use
  Company Number: GB-JNJFOC-20110508145

PATIENT
  Sex: Female

DRUGS (2)
  1. PROCHLORPERAZINE [Interacting]
     Indication: EAR INFECTION
     Route: 065
  2. TOPAMAX [Suspect]
     Indication: EPILEPSY
     Route: 048
     Dates: start: 20080101

REACTIONS (3)
  - EAR INFECTION [None]
  - DRUG INTERACTION [None]
  - CONVULSION [None]
